FAERS Safety Report 12225120 (Version 1)
Quarter: 2016Q1

REPORT INFORMATION
  Report Type: Spontaneous
  Country: US (occurrence: US)
  Receive Date: 20160331
  Receipt Date: 20160331
  Transmission Date: 20160526
  Serious: Yes (Other)
  Sender: FDA-Public Use
  Company Number: US-BAYER-2016-057608

PATIENT
  Age: 39 Year
  Sex: Male

DRUGS (1)
  1. BETASERON [Suspect]
     Active Substance: INTERFERON BETA-1B
     Dosage: UNK, QOD
     Route: 058

REACTIONS (4)
  - Multiple sclerosis relapse [None]
  - Gait disturbance [None]
  - Asthenia [None]
  - Pyrexia [None]

NARRATIVE: CASE EVENT DATE: 20150323
